FAERS Safety Report 8743140 (Version 2)
Quarter: 2012Q4

REPORT INFORMATION
  Report Type: Report from Study
  Country: NL (occurrence: NL)
  Receive Date: 20120824
  Receipt Date: 20120925
  Transmission Date: 20130627
  Serious: Yes (Life-Threatening)
  Sender: FDA-Public Use
  Company Number: NL-CELGENEUS-114-21880-12082023

PATIENT
  Age: 66 Year
  Sex: Male
  Weight: 94 kg

DRUGS (4)
  1. REVLIMID [Suspect]
     Indication: DRUG USE FOR UNKNOWN INDICATION
     Dosage: 20 Milligram
     Route: 048
     Dates: start: 20120814, end: 20120819
  2. DAUNOMYCIN [Suspect]
     Indication: DRUG USE FOR UNKNOWN INDICATION
     Route: 041
     Dates: start: 20120814, end: 20120816
  3. CYTARABINE [Suspect]
     Indication: DRUG USE FOR UNKNOWN INDICATION
     Dosage: 430 Milligram
     Route: 041
     Dates: start: 20120814, end: 20120819
  4. FRAXIPARINE [Concomitant]
     Indication: DVT PROPHYLAXIS
     Route: 058
     Dates: start: 20120815, end: 20120818

REACTIONS (1)
  - Cerebral haemorrhage [Recovered/Resolved with Sequelae]
